FAERS Safety Report 14688003 (Version 1)
Quarter: 2018Q1

REPORT INFORMATION
  Report Type: Spontaneous
  Country: US (occurrence: US)
  Receive Date: 20180328
  Receipt Date: 20180328
  Transmission Date: 20180509
  Serious: No
  Sender: FDA-Public Use
  Company Number: US-PFIZER INC-2018119836

PATIENT
  Age: 70 Year
  Sex: Male
  Weight: 68.95 kg

DRUGS (1)
  1. LYRICA [Suspect]
     Active Substance: PREGABALIN
     Indication: BACK PAIN
     Dosage: 1 CAPSULE, UNK

REACTIONS (1)
  - Drug ineffective for unapproved indication [Unknown]
